FAERS Safety Report 18704828 (Version 1)
Quarter: 2021Q1

REPORT INFORMATION
  Report Type: Spontaneous
  Country: US (occurrence: US)
  Receive Date: 20210106
  Receipt Date: 20210106
  Transmission Date: 20210419
  Serious: No
  Sender: FDA-Public Use
  Company Number: US-JNJFOC-20201252728

PATIENT
  Age: 4 Decade
  Sex: Female
  Weight: 49.94 kg

DRUGS (2)
  1. MICRONOR [Suspect]
     Active Substance: NORETHINDRONE
     Indication: CONTRACEPTION
  2. MICRONOR [Suspect]
     Active Substance: NORETHINDRONE
     Indication: MENSTRUATION IRREGULAR
     Route: 065
     Dates: start: 2002, end: 2014

REACTIONS (5)
  - Hormone level abnormal [Unknown]
  - Hot flush [Unknown]
  - Insomnia [Unknown]
  - Vomiting [Unknown]
  - Withdrawal syndrome [Unknown]

NARRATIVE: CASE EVENT DATE: 2014
